FAERS Safety Report 11514895 (Version 7)
Quarter: 2016Q1

REPORT INFORMATION
  Report Type: Report from Study
  Country: US (occurrence: US)
  Receive Date: 20150916
  Receipt Date: 20160317
  Transmission Date: 20160525
  Serious: Yes (Hospitalization, Other)
  Sender: FDA-Public Use
  Company Number: US-AMGEN-USASL2015095446

PATIENT
  Age: 66 Year
  Sex: Male

DRUGS (6)
  1. KYPROLIS [Suspect]
     Active Substance: CARFILZOMIB
     Indication: PLASMA CELL MYELOMA
     Dosage: UNK
     Route: 065
     Dates: start: 201503
  2. TOPROL XL [Concomitant]
     Active Substance: METOPROLOL SUCCINATE
     Dosage: UNK
  3. DEXAMETHASONE. [Concomitant]
     Active Substance: DEXAMETHASONE
     Dosage: 20 MG, QWK
  4. THALIDOMIDE [Concomitant]
     Active Substance: THALIDOMIDE
     Dosage: 2 MG, AT BEDTIME
  5. LISINOPRIL. [Concomitant]
     Active Substance: LISINOPRIL
     Dosage: UNK
  6. POMALYST [Concomitant]
     Active Substance: POMALIDOMIDE
     Dosage: 2 MG, AT BEDTIME

REACTIONS (11)
  - Fatigue [Unknown]
  - Cystitis [Unknown]
  - Tremor [Not Recovered/Not Resolved]
  - Bladder cancer [Unknown]
  - Parainfluenzae virus infection [Unknown]
  - Anxiety [Unknown]
  - Atrial fibrillation [Unknown]
  - Influenza [Unknown]
  - Urinary tract infection [Recovered/Resolved]
  - Pneumonia [Recovered/Resolved]
  - Cardiac disorder [Unknown]

NARRATIVE: CASE EVENT DATE: 2015
